FAERS Safety Report 6519197-2 (Version None)
Quarter: 2009Q4

REPORT INFORMATION
  Report Type: 
  Country: None (occurrence: None)
  Receive Date: 20091228
  Receipt Date: 20091211
  Transmission Date: 20100525
  Serious: Yes (Hospitalization)
  Sender: FDA-Public Use
  Company Number: US-ASTRAZENECA-2009SE32068

PATIENT
  Age: 44 Year
  Sex: Male
  Weight: 127 kg

DRUGS (6)
  1. SEROQUEL [Suspect]
     Indication: MENTAL DISORDER
     Route: 048
  2. SEROQUEL [Suspect]
     Route: 048
  3. DEPAKOTE ER [Concomitant]
     Dosage: 500 BD
  4. RYTHMOL SR [Concomitant]
  5. COREG [Concomitant]
     Dosage: BD
  6. ZOCOR [Concomitant]
     Indication: DYSLIPIDAEMIA

REACTIONS (2)
  - ILL-DEFINED DISORDER [None]
  - WEIGHT INCREASED [None]
